FAERS Safety Report 24351606 (Version 1)
Quarter: 2024Q3

REPORT INFORMATION
  Report Type: Report from Study
  Country: PK (occurrence: PK)
  Receive Date: 20240923
  Receipt Date: 20240923
  Transmission Date: 20241016
  Serious: No
  Sender: ROCHE
  Company Number: PK-ROCHE-3555839

PATIENT
  Age: 73 Year
  Sex: Female

DRUGS (11)
  1. HERCEPTIN [Suspect]
     Active Substance: TRASTUZUMAB
     Indication: Endometrial cancer
     Route: 041
     Dates: start: 20240422
  2. FAMOTIDINE [Concomitant]
     Active Substance: FAMOTIDINE
  3. PHENIRAMINE MALEATE [Concomitant]
     Active Substance: PHENIRAMINE MALEATE
  4. ONDANSETRON [Concomitant]
     Active Substance: ONDANSETRON
  5. DEXAMETHASONE [Concomitant]
     Active Substance: DEXAMETHASONE
  6. CARBOPLATIN [Concomitant]
     Active Substance: CARBOPLATIN
  7. APREPITANT [Concomitant]
     Active Substance: APREPITANT
  8. HERCEPTIN [Concomitant]
     Active Substance: TRASTUZUMAB
     Route: 042
  9. HERCEPTIN [Concomitant]
     Active Substance: TRASTUZUMAB
     Route: 042
  10. PACLITAXEL [Concomitant]
     Active Substance: PACLITAXEL
  11. FILGRASTIM [Concomitant]
     Active Substance: FILGRASTIM

REACTIONS (2)
  - Off label use [Unknown]
  - No adverse event [Unknown]

NARRATIVE: CASE EVENT DATE: 20240422
